FAERS Safety Report 18276846 (Version 1)
Quarter: 2020Q3

REPORT INFORMATION
  Report Type: Spontaneous
  Country: US (occurrence: US)
  Receive Date: 20200916
  Receipt Date: 20200916
  Transmission Date: 20201103
  Serious: No
  Sender: FDA-Public Use
  Company Number: None

PATIENT

DRUGS (2)
  1. CAFFEINE CITRATE. [Suspect]
     Active Substance: CAFFEINE CITRATE
  2. CAFFEINE CITRATE. [Suspect]
     Active Substance: CAFFEINE CITRATE
     Route: 048

REACTIONS (1)
  - Product packaging confusion [None]
